FAERS Safety Report 11362615 (Version 2)
Quarter: 2015Q3

REPORT INFORMATION
  Report Type: Spontaneous
  Country: JP (occurrence: JP)
  Receive Date: 20150810
  Receipt Date: 20150909
  Transmission Date: 20151125
  Serious: Yes (Other)
  Sender: FDA-Public Use
  Company Number: JP-MYLANLABS-2015M1026133

PATIENT

DRUGS (2)
  1. CEFOZOPRAN [Suspect]
     Active Substance: CEFOZOPRAN
     Indication: PRODUCT USED FOR UNKNOWN INDICATION
  2. LEVOFLOXACIN. [Suspect]
     Active Substance: LEVOFLOXACIN
     Indication: OSTEOMYELITIS
     Route: 065

REACTIONS (2)
  - Drug ineffective [Unknown]
  - Stenotrophomonas infection [Recovered/Resolved]
